FAERS Safety Report 17494977 (Version 1)
Quarter: 2020Q1

REPORT INFORMATION
  Report Type: Spontaneous
  Country: US (occurrence: US)
  Receive Date: 20200303
  Receipt Date: 20200303
  Transmission Date: 20200409
  Serious: No
  Sender: FDA-Public Use
  Company Number: US-AMNEAL PHARMACEUTICALS-2019-AMRX-02197

PATIENT
  Age: 64 Year
  Sex: Female

DRUGS (1)
  1. RYTARY [Suspect]
     Active Substance: CARBIDOPA\LEVODOPA
     Indication: PRODUCT USED FOR UNKNOWN INDICATION
     Dosage: 4 CAPSULES, 4X/DAY
     Route: 048
     Dates: end: 20200101

REACTIONS (6)
  - Limb discomfort [Unknown]
  - Therapy cessation [Unknown]
  - Musculoskeletal stiffness [Unknown]
  - Dysphonia [Unknown]
  - Tremor [Unknown]
  - Head discomfort [Unknown]

NARRATIVE: CASE EVENT DATE: 20200101
